FAERS Safety Report 9556197 (Version 1)
Quarter: 2013Q3

REPORT INFORMATION
  Report Type: Spontaneous
  Country: JP (occurrence: JP)
  Receive Date: 20130926
  Receipt Date: 20130926
  Transmission Date: 20140515
  Serious: Yes (Other)
  Sender: FDA-Public Use
  Company Number: JP-JNJFOC-20130911981

PATIENT
  Sex: Female
  Weight: 32 kg

DRUGS (5)
  1. SIMPONI [Suspect]
     Indication: PRODUCT USED FOR UNKNOWN INDICATION
     Route: 058
  2. SIMPONI [Suspect]
     Indication: PRODUCT USED FOR UNKNOWN INDICATION
     Route: 058
     Dates: start: 2011
  3. METOLATE [Concomitant]
     Route: 048
  4. RIMATIL [Concomitant]
     Route: 048
  5. MEDROL [Concomitant]
     Route: 065

REACTIONS (6)
  - Pneumonia [Unknown]
  - Tinnitus [Unknown]
  - Deafness [Unknown]
  - Rhinorrhoea [Unknown]
  - Dizziness [Unknown]
  - Drug ineffective [Unknown]
